FAERS Safety Report 7368267-8 (Version None)
Quarter: 2011Q1

REPORT INFORMATION
  Report Type: 
  Country: None (occurrence: None)
  Receive Date: 20110323
  Receipt Date: 20090125
  Transmission Date: 20110831
  Serious: Yes (Death, Hospitalization, Other)
  Sender: FDA-Public Use
  Company Number: US-BAYER-200911443NA

PATIENT
  Sex: Female
  Weight: 43.537 kg

DRUGS (24)
  1. BUSPAR [Concomitant]
     Indication: PRODUCT USED FOR UNKNOWN INDICATION
     Dosage: UNK
  2. PROTAMINE SULFATE [Concomitant]
     Dosage: 25 MG, UNK
     Route: 042
     Dates: start: 20010717
  3. EPINEPHRINE [Concomitant]
     Dosage: 10 MG, X 5
     Route: 042
  4. DOPAMINE [Concomitant]
     Dosage: 3 MG/MCG/MIN
     Route: 042
     Dates: start: 20010717
  5. VERSED [Concomitant]
     Dosage: 1 MG, X 2
     Dates: start: 20010620, end: 20010620
  6. TRASYLOL [Suspect]
     Indication: ARTERIAL BYPASS OPERATION
  7. ATIVAN [Concomitant]
     Indication: PRODUCT USED FOR UNKNOWN INDICATION
     Dosage: UNK
  8. ZEMURON [Concomitant]
     Dosage: UNK
     Route: 042
     Dates: start: 20010717, end: 20010717
  9. NITROGLYCERIN [Concomitant]
     Dosage: UNK
     Route: 041
     Dates: start: 20010717, end: 20010717
  10. ATACAND [Concomitant]
  11. FORTAZ [Concomitant]
  12. TRASYLOL [Suspect]
     Indication: SPLENECTOMY
  13. OMNIPAQUE 140 [Concomitant]
     Dosage: 50 ML, TID
     Route: 042
     Dates: start: 20010620, end: 20010620
  14. FENTANYL [Concomitant]
     Dosage: UNK
     Route: 042
     Dates: start: 20010717, end: 20010717
  15. ANCEF [Concomitant]
     Dosage: 1 G, UNK
     Route: 042
     Dates: start: 20010717
  16. VANCOMYCIN [Concomitant]
  17. TRASYLOL [Suspect]
     Indication: AORTIC BYPASS
     Dosage: UNK
     Route: 042
     Dates: start: 20010623
  18. HEPARIN [Concomitant]
     Dosage: 3500 U, UNK
     Route: 042
     Dates: start: 20010717
  19. TRASYLOL [Suspect]
     Indication: AORTIC ANEURYSM REPAIR
  20. UNCODEABLE ^UNCLASSIFIABLE^ [Concomitant]
     Indication: PRODUCT USED FOR UNKNOWN INDICATION
  21. FENTANYL [Concomitant]
     Dosage: 125 MG, BID
     Dates: start: 20010620, end: 20010620
  22. NEO-SYNEPHRINOL [Concomitant]
     Dosage: UNK
     Route: 042
     Dates: start: 20010717
  23. MANNITOL [Concomitant]
     Dosage: 12.5 MG, UNK
     Route: 042
     Dates: start: 20010717
  24. UNCODEABLE ^UNCLASSIFIABLE^ [Concomitant]
     Dosage: 1250 ML, UNK
     Dates: start: 20010717

REACTIONS (13)
  - PAIN [None]
  - INJURY [None]
  - ANXIETY [None]
  - ANHEDONIA [None]
  - RENAL FAILURE [None]
  - UNEVALUABLE EVENT [None]
  - FEAR [None]
  - RENAL IMPAIRMENT [None]
  - DEATH [None]
  - MULTI-ORGAN FAILURE [None]
  - RENAL INJURY [None]
  - EMOTIONAL DISTRESS [None]
  - STRESS [None]
